FAERS Safety Report 12139872 (Version 1)
Quarter: 2016Q1

REPORT INFORMATION
  Report Type: Spontaneous
  Country: US (occurrence: None)
  Receive Date: 20160302
  Receipt Date: 20160302
  Transmission Date: 20160526
  Serious: No
  Sender: FDA-Public Use
  Company Number: None

PATIENT
  Sex: Female

DRUGS (8)
  1. METFORMIN [Suspect]
     Active Substance: METFORMIN HYDROCHLORIDE
  2. GLUCOPHAGE [Suspect]
     Active Substance: METFORMIN HYDROCHLORIDE
  3. NITROGLYCERIN. [Suspect]
     Active Substance: NITROGLYCERIN
  4. LASIX [Suspect]
     Active Substance: FUROSEMIDE
  5. HUMALOG [Suspect]
     Active Substance: INSULIN LISPRO
  6. LIPITOR [Suspect]
     Active Substance: ATORVASTATIN CALCIUM
  7. METOPROLOL. [Suspect]
     Active Substance: METOPROLOL
  8. LISINOPRIL. [Suspect]
     Active Substance: LISINOPRIL

REACTIONS (1)
  - Chest pain [None]
